FAERS Safety Report 24148327 (Version 1)
Quarter: 2024Q3

REPORT INFORMATION
  Report Type: Spontaneous
  Country: FR (occurrence: FR)
  Receive Date: 20240729
  Receipt Date: 20240729
  Transmission Date: 20241017
  Serious: Yes (Hospitalization)
  Sender: MYLAN
  Company Number: FR-ROCHE-3280559

PATIENT
  Age: 76 Year
  Sex: Male
  Weight: 60 kg

DRUGS (68)
  1. OXALIPLATIN [Suspect]
     Active Substance: OXALIPLATIN
     Indication: Diffuse large B-cell lymphoma
     Dosage: 170 MILLIGRAM, Q3W (START DATE OF MOST RECENT DOSE OF STUDY DRUG PRIOR TO AE/SAE 16-FEB-2023)
     Route: 042
     Dates: start: 20230127, end: 20230216
  2. GLOFITAMAB [Suspect]
     Active Substance: GLOFITAMAB
     Indication: Diffuse large B-cell lymphoma
     Dosage: 2.5 MILLIGRAM, Q3W (START DATE OF MOST RECENT DOSE OF STUDY DRUG PRIOR TO AE)
     Route: 042
     Dates: start: 20230203
  3. GLOFITAMAB [Suspect]
     Active Substance: GLOFITAMAB
     Dosage: 30 MILLIGRAM, Q3W (START DATE OF MOST RECENT DOSE OF STUDY DRUG PRIOR TO AE)
     Route: 042
     Dates: start: 20230309
  4. DEXAMETHASONE [Concomitant]
     Active Substance: DEXAMETHASONE
     Indication: Premedication
     Dosage: 20 MILLIGRAM, PRN (AS NECESSARY)
     Route: 042
     Dates: start: 20230202, end: 20230202
  5. DEXAMETHASONE [Concomitant]
     Active Substance: DEXAMETHASONE
     Dosage: 20 MILLIGRAM, PRN (AS NECESSARY)
     Route: 042
     Dates: start: 20230209, end: 20230209
  6. DEXAMETHASONE [Concomitant]
     Active Substance: DEXAMETHASONE
     Dosage: 20 MILLIGRAM, PRN (AS NECESSARY)
     Route: 042
     Dates: start: 20230216, end: 20230216
  7. DEXAMETHASONE [Concomitant]
     Active Substance: DEXAMETHASONE
     Dosage: 20 MILLIGRAM, PRN (AS NECESSARY)
     Route: 042
     Dates: start: 20230309, end: 20230309
  8. DEXAMETHASONE [Concomitant]
     Active Substance: DEXAMETHASONE
     Dosage: 20 MILLIGRAM, PRN (AS NECESSARY)
     Route: 042
     Dates: start: 20230330, end: 20230330
  9. DEXAMETHASONE [Concomitant]
     Active Substance: DEXAMETHASONE
     Dosage: 20 MILLIGRAM, PRN (AS NECESSARY)
     Route: 042
     Dates: start: 20230418, end: 20230418
  10. DEXAMETHASONE [Concomitant]
     Active Substance: DEXAMETHASONE
     Dosage: 20 MILLIGRAM, PRN (AS NECESSARY)
     Route: 042
     Dates: start: 20230516, end: 20230516
  11. DEXAMETHASONE [Concomitant]
     Active Substance: DEXAMETHASONE
     Dosage: 20 MILLIGRAM, PRN (AS NECESSARY)
     Route: 042
     Dates: start: 20230606, end: 20230606
  12. DEXAMETHASONE [Concomitant]
     Active Substance: DEXAMETHASONE
     Dosage: 20 MILLIGRAM, PRN (AS NECESSARY)
     Route: 042
     Dates: start: 20230627, end: 20230627
  13. XARELTO [Concomitant]
     Active Substance: RIVAROXABAN
     Dosage: 20 MILLIGRAM, QD
     Route: 048
     Dates: start: 20221201, end: 20230125
  14. XARELTO [Concomitant]
     Active Substance: RIVAROXABAN
     Dosage: 10 MILLIGRAM, QD
     Route: 048
     Dates: start: 20230126
  15. PREDNISONE [Concomitant]
     Active Substance: PREDNISONE
     Dosage: 60 MILLIGRAM, QD
     Route: 048
     Dates: start: 20230117, end: 20230122
  16. CICLOPIROX [Concomitant]
     Active Substance: CICLOPIROX
     Indication: Onychomycosis
     Dosage: UNK UNK, PRN (AS NECESSARY)
     Route: 061
     Dates: start: 20230516
  17. FILGRASTIM [Concomitant]
     Active Substance: FILGRASTIM
     Dosage: 30 U, QD
     Route: 058
     Dates: start: 20230224, end: 20230228
  18. PREDNISONE [Concomitant]
     Active Substance: PREDNISONE
     Indication: Bronchitis
     Dosage: UNK
     Route: 065
     Dates: start: 20230410, end: 20230417
  19. ONDANSETRON [Concomitant]
     Active Substance: ONDANSETRON
     Dosage: 8 MILLIGRAM, PRN (AS NECESSARY)
     Route: 048
     Dates: start: 20230920, end: 20230921
  20. BROMAZEPAM [Concomitant]
     Active Substance: BROMAZEPAM
     Indication: Affective disorder
     Dosage: 1 DOSAGE FORM, PRN
     Route: 048
     Dates: start: 20230418, end: 20230921
  21. BACTRIM [Concomitant]
     Active Substance: SULFAMETHOXAZOLE\TRIMETHOPRIM
     Dosage: UNK (0.33 WEEK)
     Route: 065
     Dates: start: 20230130, end: 20230921
  22. METHYLPREDNISOLONE [Concomitant]
     Active Substance: METHYLPREDNISOLONE
     Indication: Premedication
     Dosage: 80 MILLIGRAM, PRN (AS NECESSARY)
     Route: 042
     Dates: start: 20230126, end: 20230126
  23. METHYLPREDNISOLONE [Concomitant]
     Active Substance: METHYLPREDNISOLONE
     Dosage: 60 MILLIGRAM, PRN (AS NECESSARY)
     Route: 042
     Dates: start: 20230127, end: 20230127
  24. ONDANSETRON [Concomitant]
     Active Substance: ONDANSETRON
     Indication: Premedication
     Dosage: 8 MILLIGRAM, PRN (AS NECESSARY)
     Route: 042
     Dates: start: 20230127, end: 20230127
  25. ONDANSETRON [Concomitant]
     Active Substance: ONDANSETRON
     Dosage: 8 MILLIGRAM, PRN (AS NECESSARY)
     Route: 042
     Dates: start: 20230516, end: 20230516
  26. ONDANSETRON [Concomitant]
     Active Substance: ONDANSETRON
     Dosage: 8 MILLIGRAM, PRN (AS NECESSARY)
     Route: 042
     Dates: start: 20230606, end: 20230606
  27. ONDANSETRON [Concomitant]
     Active Substance: ONDANSETRON
     Dosage: 8 MILLIGRAM, PRN (AS NECESSARY)
     Route: 042
     Dates: start: 20230627, end: 20230627
  28. GEMCITABINE [Concomitant]
     Active Substance: GEMCITABINE
     Indication: Diffuse large B-cell lymphoma
     Dosage: 1670 MILLIGRAM, Q3W (1670 MILLIGRAM, Q3W START DATE OF MOST RECENT DOSE OF GEMCITABINE PRIOR TO AE 1
     Route: 042
     Dates: start: 20230127, end: 20230216
  29. FLUOROURACIL [Concomitant]
     Active Substance: FLUOROURACIL
     Indication: Squamous cell carcinoma
     Dosage: UNK
     Route: 061
     Dates: start: 202306, end: 202306
  30. ESOMEPRAZOLE [Concomitant]
     Active Substance: ESOMEPRAZOLE
     Indication: Gastrooesophageal reflux disease
     Dosage: 20 MILLIGRAM, PRN (AS NECESSARY)
     Route: 048
     Dates: start: 20230223, end: 20230921
  31. MORPHINE SULFATE [Concomitant]
     Active Substance: MORPHINE SULFATE
     Dosage: 5 MILLIGRAM, PRN (AS NECESSARY)
     Route: 048
     Dates: start: 20230920, end: 20230921
  32. ACETAMINOPHEN [Concomitant]
     Active Substance: ACETAMINOPHEN
     Indication: Premedication
     Dosage: 1000 MILLIGRAM, PRN (AS NECESSARY)
     Route: 048
     Dates: start: 20230126, end: 20230126
  33. ACETAMINOPHEN [Concomitant]
     Active Substance: ACETAMINOPHEN
     Dosage: 1000 MILLIGRAM, PRN (AS NECESSARY)
     Route: 048
     Dates: start: 20230202, end: 20230202
  34. ACETAMINOPHEN [Concomitant]
     Active Substance: ACETAMINOPHEN
     Dosage: 1000 MILLIGRAM, PRN (AS NECESSARY)
     Route: 048
     Dates: start: 20230209, end: 20230209
  35. ACETAMINOPHEN [Concomitant]
     Active Substance: ACETAMINOPHEN
     Dosage: 1000 MILLIGRAM, PRN (AS NECESSARY)
     Route: 048
     Dates: start: 20230309, end: 20230309
  36. ACETAMINOPHEN [Concomitant]
     Active Substance: ACETAMINOPHEN
     Dosage: 500 MILLIGRAM, PRN (AS NECESSARY)
     Route: 048
     Dates: start: 20230330, end: 20230330
  37. ACETAMINOPHEN [Concomitant]
     Active Substance: ACETAMINOPHEN
     Dosage: 1000 MILLIGRAM, PRN (AS NECESSARY)
     Route: 048
     Dates: start: 20230418, end: 20230418
  38. ACETAMINOPHEN [Concomitant]
     Active Substance: ACETAMINOPHEN
     Dosage: 1000 MILLIGRAM, PRN (AS NECESSARY)
     Route: 048
     Dates: start: 20230516, end: 20230516
  39. ACETAMINOPHEN [Concomitant]
     Active Substance: ACETAMINOPHEN
     Dosage: 1000 MILLIGRAM, PRN (AS NECESSARY)
     Route: 048
     Dates: start: 20230606, end: 20230606
  40. ACETAMINOPHEN [Concomitant]
     Active Substance: ACETAMINOPHEN
     Dosage: 1000 MILLIGRAM, PRN (AS NECESSARY)
     Route: 048
     Dates: start: 20230627, end: 20230627
  41. ACETAMINOPHEN [Concomitant]
     Active Substance: ACETAMINOPHEN
     Dosage: 1000 MILLIGRAM, PRN (AS NECESSARY)
     Route: 048
     Dates: start: 20230718, end: 20230718
  42. ACETAMINOPHEN [Concomitant]
     Active Substance: ACETAMINOPHEN
     Dosage: 1000 MILLIGRAM, PRN (AS NECESSARY)
     Route: 048
     Dates: start: 20230808, end: 20230808
  43. ACETAMINOPHEN [Concomitant]
     Active Substance: ACETAMINOPHEN
     Dosage: 1000 MILLIGRAM, PRN (AS NECESSARY)
     Route: 048
     Dates: start: 20230829, end: 20230829
  44. ACETAMINOPHEN [Concomitant]
     Active Substance: ACETAMINOPHEN
     Dosage: 1000 MILLIGRAM, PRN (AS NECESSARY)
     Route: 048
     Dates: start: 20230920, end: 20230921
  45. VALACYCLOVIR HYDROCHLORIDE [Concomitant]
     Active Substance: VALACYCLOVIR HYDROCHLORIDE
     Dosage: 500 MILLIGRAM, BID
     Route: 048
     Dates: start: 20230128
  46. DEXCHLORPHENIRAMINE [Concomitant]
     Active Substance: DEXCHLORPHENIRAMINE
     Indication: Premedication
     Dosage: 5 MILLIGRAM, PRN (AS NECESSARY)
     Route: 042
     Dates: start: 20230126, end: 20230126
  47. DEXCHLORPHENIRAMINE [Concomitant]
     Active Substance: DEXCHLORPHENIRAMINE
     Dosage: 5 MILLIGRAM, PRN (AS NECESSARY)
     Dates: start: 20230202, end: 20230202
  48. DEXCHLORPHENIRAMINE [Concomitant]
     Active Substance: DEXCHLORPHENIRAMINE
     Dosage: 20 MILLIGRAM, PRN (AS NECESSARY)
     Route: 042
     Dates: start: 20230209, end: 20230209
  49. DEXCHLORPHENIRAMINE [Concomitant]
     Active Substance: DEXCHLORPHENIRAMINE
     Dosage: 5 MILLIGRAM, PRN (AS NECESSARY)
     Route: 042
     Dates: start: 20230216, end: 20230216
  50. DEXCHLORPHENIRAMINE [Concomitant]
     Active Substance: DEXCHLORPHENIRAMINE
     Dosage: 20 MILLIGRAM, PRN (AS NECESSARY)
     Route: 042
     Dates: start: 20230309, end: 20230309
  51. DEXCHLORPHENIRAMINE [Concomitant]
     Active Substance: DEXCHLORPHENIRAMINE
     Dosage: 5 MILLIGRAM, PRN (AS NECESSARY)
     Route: 042
     Dates: start: 20230330, end: 20230330
  52. DEXCHLORPHENIRAMINE [Concomitant]
     Active Substance: DEXCHLORPHENIRAMINE
     Dosage: 5 MILLIGRAM, PRN (AS NECESSARY)
     Route: 042
     Dates: start: 20230418, end: 20230418
  53. DEXCHLORPHENIRAMINE [Concomitant]
     Active Substance: DEXCHLORPHENIRAMINE
     Dosage: 5 MILLIGRAM, PRN (AS NECESSARY)
     Route: 042
     Dates: start: 20230516, end: 20230516
  54. DEXCHLORPHENIRAMINE [Concomitant]
     Active Substance: DEXCHLORPHENIRAMINE
     Dosage: 5 MILLIGRAM, PRN (AS NECESSARY)
     Route: 042
     Dates: start: 20230606, end: 20230606
  55. DEXCHLORPHENIRAMINE [Concomitant]
     Active Substance: DEXCHLORPHENIRAMINE
     Dosage: 5 MILLIGRAM, PRN (AS NECESSARY)
     Route: 042
     Dates: start: 20230627, end: 20230627
  56. DEXCHLORPHENIRAMINE [Concomitant]
     Active Substance: DEXCHLORPHENIRAMINE
     Dosage: 5 MILLIGRAM, PRN (AS NECESSARY)
     Route: 042
     Dates: start: 20230718, end: 20230718
  57. DEXCHLORPHENIRAMINE [Concomitant]
     Active Substance: DEXCHLORPHENIRAMINE
     Dosage: 5 MILLIGRAM, PRN (AS NECESSARY)
     Route: 042
     Dates: start: 20230808, end: 20230808
  58. DEXCHLORPHENIRAMINE [Concomitant]
     Active Substance: DEXCHLORPHENIRAMINE
     Dosage: 5 MILLIGRAM, PRN (AS NECESSARY)
     Dates: start: 20230829, end: 20230829
  59. OBINUTUZUMAB [Concomitant]
     Active Substance: OBINUTUZUMAB
     Indication: Diffuse large B-cell lymphoma
     Dosage: 1000 MILLIGRAM, 1 TOTAL (30 MG) (START DATE OF MOST RECENT DOSE PRIOR TO AE)
     Route: 042
     Dates: start: 20230126
  60. FASTURTEC [Concomitant]
     Active Substance: RASBURICASE
     Dosage: 1.5 MILLIGRAM
     Route: 048
     Dates: start: 20230127
  61. LEUCOVORIN CALCIUM [Concomitant]
     Active Substance: LEUCOVORIN CALCIUM
     Dosage: 5 MILLIGRAM, QD
     Route: 048
     Dates: start: 20230128
  62. PRISTINAMYCIN [Concomitant]
     Active Substance: PRISTINAMYCIN
     Indication: Bronchitis
     Dosage: 500 MILLIGRAM, QD
     Route: 048
     Dates: start: 20230410
  63. PRIMPERAN [Concomitant]
     Active Substance: METOCLOPRAMIDE HYDROCHLORIDE
     Dosage: 10 MILLIGRAM, PRN
     Route: 048
  64. Dexeryl [Concomitant]
     Indication: Xerosis
     Dosage: UNK UNK, PRN (AS NECESSARY)
     Route: 061
  65. PHOCYTAN [Concomitant]
     Active Substance: .ALPHA.-GLUCOSE-1-PHOSPHATE
     Indication: Hypophosphataemia
     Dosage: 0.66 OTHER, PRN (AS NECESSARY)
     Route: 042
     Dates: start: 20230202, end: 20230203
  66. LEUCOVORIN CALCIUM [Concomitant]
     Active Substance: LEUCOVORIN CALCIUM
     Dosage: 25 MILLIGRAM, QW
     Route: 048
     Dates: start: 20230126
  67. TRAMADOL [Concomitant]
     Active Substance: TRAMADOL\TRAMADOL HYDROCHLORIDE
     Dosage: 50 MILLIGRAM, PRN (AS NECESSARY)
     Route: 048
     Dates: start: 20230920, end: 20230921
  68. ACETAMINOPHEN [Concomitant]
     Active Substance: ACETAMINOPHEN
     Indication: Premedication
     Dosage: 1000 MILLIGRAM, PRN (AS NECESSARY)
     Route: 042
     Dates: start: 20230216, end: 20230216

REACTIONS (2)
  - Cytokine release syndrome [Recovered/Resolved]
  - Peripheral sensory neuropathy [Not Recovered/Not Resolved]

NARRATIVE: CASE EVENT DATE: 20230127
